FAERS Safety Report 4316918-4 (Version None)
Quarter: 2004Q1

REPORT INFORMATION
  Report Type: 
  Country: None (occurrence: None)
  Receive Date: 20040308
  Receipt Date: 20040115
  Transmission Date: 20041129
  Serious: No
  Sender: FDA-Public Use
  Company Number: ALMO2004003

PATIENT
  Sex: Female

DRUGS (3)
  1. AXERT [Suspect]
  2. FIORINAL [Concomitant]
  3. MAXAIR [Concomitant]

REACTIONS (1)
  - DRUG EFFECT DECREASED [None]
